FAERS Safety Report 7312422-X (Version None)
Quarter: 2011Q1

REPORT INFORMATION
  Report Type: 
  Country: None (occurrence: None)
  Receive Date: 20110214
  Receipt Date: 20110131
  Transmission Date: 20110831
  Serious: Yes (Life-Threatening, Hospitalization)
  Sender: FDA-Public Use
  Company Number: 2010CP000310

PATIENT
  Age: 4 Year
  Sex: Female

DRUGS (4)
  1. PARACETAMOL (PARACETAMOL) [Suspect]
     Dosage: 1 DOSAGE FORM; PO
     Route: 048
     Dates: start: 20101023
  2. AMOXICILLIN [Concomitant]
  3. PERFALGAN (PARACETAMOL) [Suspect]
     Dosage: 165 MG/KG;TOTAL;IV
     Route: 042
     Dates: start: 20101023, end: 20101024
  4. GENTAMICIN SULFATE [Concomitant]

REACTIONS (3)
  - HEPATITIS FULMINANT [None]
  - OVERDOSE [None]
  - DRUG ADMINISTRATION ERROR [None]
